FAERS Safety Report 9057684 (Version 1)
Quarter: 2013Q1

REPORT INFORMATION
  Report Type: Spontaneous
  Country: US (occurrence: None)
  Receive Date: 20130204
  Receipt Date: 20130204
  Transmission Date: 20140127
  Serious: Yes (Hospitalization)
  Sender: FDA-Public Use
  Company Number: None

PATIENT
  Age: 63 Year
  Sex: Male
  Weight: 87.7 kg

DRUGS (2)
  1. LIDOCAINE [Suspect]
     Indication: ARTHRITIS
     Dates: start: 20121203, end: 20121203
  2. ROPIVACAINE [Suspect]
     Dates: start: 20121203, end: 20121203

REACTIONS (5)
  - Erythema [None]
  - Rash pruritic [None]
  - Throat tightness [None]
  - Chest pain [None]
  - Dyspnoea [None]
